FAERS Safety Report 4289046-4 (Version None)
Quarter: 2004Q1

REPORT INFORMATION
  Report Type: 
  Country: None (occurrence: None)
  Receive Date: 20040209
  Receipt Date: 20031112
  Transmission Date: 20041129
  Serious: Yes (Death, Life-Threatening, Hospitalization, Disabling)
  Sender: FDA-Public Use
  Company Number: WAES 0311USA01725

PATIENT
  Age: 55 Year
  Sex: Male

DRUGS (4)
  1. ADVAIR DISKUS 100/50 [Concomitant]
     Route: 055
     Dates: start: 20011001
  2. SINGULAIR [Suspect]
     Indication: ASTHMA
     Route: 048
     Dates: start: 20011008, end: 20020305
  3. SINGULAIR [Suspect]
     Indication: RHINITIS
     Route: 048
     Dates: start: 20011008, end: 20020305
  4. AVELOX [Concomitant]

REACTIONS (35)
  - ALLERGIC GRANULOMATOUS ANGIITIS [None]
  - ASTHMA [None]
  - BENIGN PROSTATIC HYPERPLASIA [None]
  - BLOOD CHOLESTEROL INCREASED [None]
  - BRONCHITIS [None]
  - CARDIAC ARREST [None]
  - CHRONIC OBSTRUCTIVE AIRWAYS DISEASE [None]
  - COMA [None]
  - CONNECTIVE TISSUE DISORDER [None]
  - ENDOCARDIAL DISEASE [None]
  - ENDOCARDIAL FIBROSIS [None]
  - EOSINOPHILIC MYOCARDITIS [None]
  - HAEMATURIA [None]
  - HAEMOPTYSIS [None]
  - HAEMORRHAGE [None]
  - HEART RATE INCREASED [None]
  - HYPEREOSINOPHILIC SYNDROME [None]
  - HYPERTENSION [None]
  - LIPID METABOLISM DISORDER [None]
  - LIPIDS ABNORMAL [None]
  - LOW DENSITY LIPOPROTEIN INCREASED [None]
  - LUNG INFILTRATION [None]
  - MONONEURITIS [None]
  - MYOCARDIAL INFARCTION [None]
  - PARAESTHESIA [None]
  - PLEURAL EFFUSION [None]
  - PNEUMONIA BACTERIAL [None]
  - PNEUMONIA VIRAL [None]
  - PULMONARY ALVEOLAR HAEMORRHAGE [None]
  - RED BLOOD CELLS URINE POSITIVE [None]
  - RESPIRATORY FAILURE [None]
  - SINUS DISORDER [None]
  - THROMBOSIS [None]
  - VASCULITIC RASH [None]
  - VASCULITIS NECROTISING [None]
